FAERS Safety Report 14959256 (Version 2)
Quarter: 2018Q2

REPORT INFORMATION
  Report Type: Report from Study
  Country: DE (occurrence: DE)
  Receive Date: 20180531
  Receipt Date: 20180622
  Transmission Date: 20180711
  Serious: Yes (Death, Hospitalization)
  Sender: FDA-Public Use
  Company Number: DE-PFIZER INC-2018219702

PATIENT
  Age: 49 Year
  Sex: Female
  Weight: 58 kg

DRUGS (31)
  1. PACLITAXEL. [Suspect]
     Active Substance: PACLITAXEL
     Dosage: 175 MG/M2, UNK
     Route: 065
     Dates: start: 20130301
  2. CARBOPLATIN. [Suspect]
     Active Substance: CARBOPLATIN
     Dosage: 755 MG, LAST DOSE PRIOR TO SAE ON 14/JUN/2013
     Route: 065
     Dates: start: 20130301, end: 20130614
  3. NEULASTA [Concomitant]
     Active Substance: PEGFILGRASTIM
     Dosage: 6 MG, ONE DAY AFTER CHEMOTHERAPY
     Route: 058
     Dates: start: 20130528, end: 20130615
  4. PACLITAXEL. [Suspect]
     Active Substance: PACLITAXEL
     Dosage: 282 MG, UNK
  5. DEXAMETHASON /00016001/ [Concomitant]
     Active Substance: DEXAMETHASONE
     Indication: HYPERSENSITIVITY
     Dosage: 20 MG, ONE DAY BEFORE CHEMOTHERAPY
     Route: 042
     Dates: start: 20130301, end: 20130614
  6. BEVACIZUMAB. [Suspect]
     Active Substance: BEVACIZUMAB
     Dosage: 860 MG, LAST DOSE PRIOR TO SAE ON 14/JUN/2013
     Route: 065
     Dates: start: 20130325, end: 20130614
  7. ONDANSETRON [Concomitant]
     Active Substance: ONDANSETRON
     Indication: VOMITING
  8. NEULASTA [Concomitant]
     Active Substance: PEGFILGRASTIM
     Dosage: 6 MG, ONE DAY AFTER CHEMOTHERAPY
     Route: 058
     Dates: start: 20130302, end: 20130615
  9. ARANESP [Concomitant]
     Active Substance: DARBEPOETIN ALFA
     Dosage: 500 UG
     Route: 058
     Dates: start: 20130528, end: 20130528
  10. DEXAMETHASON /00016001/ [Concomitant]
     Active Substance: DEXAMETHASONE
     Indication: NAUSEA
     Dosage: 12 MG, ONE DAY BEFORE CHEMOTHERAPY
     Route: 042
     Dates: start: 20130228, end: 20130613
  11. ONDANSETRON [Concomitant]
     Active Substance: ONDANSETRON
     Indication: NAUSEA
     Dosage: 8 MG, ON THE DAY OF CHEMOTHERAPY
     Route: 042
     Dates: start: 20130301, end: 20130614
  12. FERINJECT [Concomitant]
     Active Substance: FERRIC CARBOXYMALTOSE
     Indication: ANAEMIA
     Dosage: 50 MG
     Route: 042
     Dates: start: 20130528, end: 20130528
  13. PACLITAXEL. [Suspect]
     Active Substance: PACLITAXEL
     Dosage: 203 MG, UNK
     Route: 065
  14. IVEMEND [Concomitant]
     Active Substance: FOSAPREPITANT DIMEGLUMINE
     Indication: VOMITING
  15. BEVACIZUMAB. [Suspect]
     Active Substance: BEVACIZUMAB
     Indication: BREAST CANCER
     Dosage: 15 MG/KG, UNK
     Route: 065
     Dates: start: 20130325
  16. BEVACIZUMAB. [Suspect]
     Active Substance: BEVACIZUMAB
     Dosage: 792 MG
     Route: 065
     Dates: start: 20130422
  17. IVEMEND [Concomitant]
     Active Substance: FOSAPREPITANT DIMEGLUMINE
     Indication: NAUSEA
     Dosage: 150 MG, ON THE DAY OF CHEMOTHERAPY
     Route: 042
     Dates: start: 20130301, end: 20130614
  18. RANITIDIN [Concomitant]
     Active Substance: RANITIDINE HYDROCHLORIDE
     Indication: PROPHYLAXIS AGAINST GASTROINTESTINAL ULCER
     Dosage: 50 MG, ON THE DAY OF CHEMOTHERAPY
     Route: 042
     Dates: start: 20130301, end: 20130614
  19. PACLITAXEL. [Suspect]
     Active Substance: PACLITAXEL
     Dosage: 284 MG, LAST DOSE PRIOR TO SAE ON 14/JUN/2013
     Route: 065
     Dates: start: 20130301, end: 20130614
  20. CARBOPLATIN. [Suspect]
     Active Substance: CARBOPLATIN
     Indication: BREAST CANCER
     Dosage: 705 MG, UNK
     Route: 065
     Dates: start: 20130422
  21. CARBOPLATIN. [Suspect]
     Active Substance: CARBOPLATIN
     Dosage: 705 MG, UNK
     Route: 065
     Dates: start: 20130325
  22. CARBOPLATIN. [Suspect]
     Active Substance: CARBOPLATIN
     Dosage: 534 MG, UNK
     Route: 065
  23. BEVACIZUMAB. [Suspect]
     Active Substance: BEVACIZUMAB
     Dosage: 774 MG, UNK
     Route: 065
     Dates: start: 20130614
  24. ZOFRAN [Concomitant]
     Active Substance: ONDANSETRON HYDROCHLORIDE
     Indication: VOMITING
     Dosage: 4 MG, ON THE DAY OF CHEMOTHERAPY
     Route: 048
     Dates: start: 20130302, end: 20130616
  25. TAVEGIL /00137201/ [Concomitant]
     Active Substance: CLEMASTINE FUMARATE
     Indication: HYPERSENSITIVITY
     Dosage: 2MG
     Route: 042
     Dates: start: 20130301, end: 20130614
  26. TAVEGIL /00137201/ [Concomitant]
     Active Substance: CLEMASTINE FUMARATE
     Indication: NAUSEA
  27. PACLITAXEL. [Suspect]
     Active Substance: PACLITAXEL
     Indication: BREAST CANCER
     Dosage: 273 MG, UNK
     Route: 065
     Dates: start: 20130422
  28. PACLITAXEL. [Suspect]
     Active Substance: PACLITAXEL
     Dosage: 202 MG, UNK
     Route: 065
  29. CARBOPLATIN. [Suspect]
     Active Substance: CARBOPLATIN
     Dosage: 524 MG
     Route: 065
  30. CARBOPLATIN. [Suspect]
     Active Substance: CARBOPLATIN
     Dosage: 475 MG, UNK
     Route: 065
  31. RATIOGRASTIM [Concomitant]
     Active Substance: FILGRASTIM
     Dosage: 30 IU
     Route: 058
     Dates: start: 20130423, end: 20130423

REACTIONS (10)
  - Bacteraemia [Recovered/Resolved]
  - Anaemia [Unknown]
  - Ileus [Fatal]
  - Leukopenia [Unknown]
  - Urosepsis [Recovered/Resolved]
  - Vomiting [Unknown]
  - Sepsis [Unknown]
  - Febrile neutropenia [Recovered/Resolved]
  - Hydronephrosis [Recovered/Resolved]
  - General physical health deterioration [Recovered/Resolved]

NARRATIVE: CASE EVENT DATE: 20130325
